FAERS Safety Report 7740199-2 (Version None)
Quarter: 2011Q3

REPORT INFORMATION
  Report Type: 
  Country: None (occurrence: None)
  Receive Date: 20110909
  Receipt Date: 20110909
  Transmission Date: 20111222
  Serious: Yes (Other)
  Sender: FDA-Public Use
  Company Number: None

PATIENT

DRUGS (2)
  1. HUMULIN N [Suspect]
     Indication: DIABETES MELLITUS
  2. HUMALIN REGULAR [Concomitant]
     Indication: DIABETES MELLITUS

REACTIONS (3)
  - SELF-MEDICATION [None]
  - DRUG DISPENSING ERROR [None]
  - INFECTION [None]
